FAERS Safety Report 15506894 (Version 4)
Quarter: 2019Q2

REPORT INFORMATION
  Report Type: Spontaneous
  Country: CA (occurrence: CA)
  Receive Date: 20181016
  Receipt Date: 20190404
  Transmission Date: 20190711
  Serious: Yes (Hospitalization, Other)
  Sender: FDA-Public Use
  Company Number: CA-PFIZER INC-2018351831

PATIENT
  Age: 71 Year
  Sex: Male

DRUGS (2)
  1. METHOTREXATE SODIUM. [Suspect]
     Active Substance: METHOTREXATE SODIUM
     Dosage: 25 MG WEEKLY
     Route: 058
     Dates: end: 201807
  2. PLAQUENIL S [Concomitant]
     Active Substance: HYDROXYCHLOROQUINE SULFATE
     Dosage: UNK

REACTIONS (9)
  - Cognitive disorder [Unknown]
  - Viral rash [Unknown]
  - Drug eruption [Unknown]
  - Drug intolerance [Unknown]
  - Drug ineffective [Unknown]
  - Cerebral disorder [Unknown]
  - Rash [Unknown]
  - Peripheral swelling [Unknown]
  - Fatigue [Unknown]
